FAERS Safety Report 5390911-5 (Version None)
Quarter: 2007Q3

REPORT INFORMATION
  Report Type: 
  Country: None (occurrence: None)
  Receive Date: 20070716
  Receipt Date: 20070705
  Transmission Date: 20080115
  Serious: Yes (Hospitalization)
  Sender: FDA-Public Use
  Company Number: 2007BI008393

PATIENT
  Age: 64 Year
  Sex: Female
  Weight: 68.0396 kg

DRUGS (4)
  1. AVONEX [Suspect]
     Indication: MULTIPLE SCLEROSIS
     Dosage: 30 UG;QW; IM
     Route: 030
     Dates: start: 19960101, end: 20030101
  2. AVONEX [Suspect]
     Indication: MULTIPLE SCLEROSIS
     Dosage: 30 UG;QW; IM
     Route: 030
     Dates: start: 20030101
  3. ZANAFLEX [Concomitant]
  4. NEXIUM [Concomitant]

REACTIONS (7)
  - HIP FRACTURE [None]
  - HYPERTENSION [None]
  - MENINGIOMA BENIGN [None]
  - PARAPLEGIA [None]
  - PITTING OEDEMA [None]
  - PRIMARY PROGRESSIVE MULTIPLE SCLEROSIS [None]
  - TENSION HEADACHE [None]
